FAERS Safety Report 18843595 (Version 1)
Quarter: 2021Q1

REPORT INFORMATION
  Report Type: Report from Study
  Country: CA (occurrence: CA)
  Receive Date: 20210203
  Receipt Date: 20210203
  Transmission Date: 20210419
  Serious: No
  Sender: FDA-Public Use
  Company Number: CA-EXELIXIS-CABO-20027332

PATIENT
  Sex: Male

DRUGS (3)
  1. CABOMETYX [Suspect]
     Active Substance: CABOZANTINIB S-MALATE
     Dosage: UNK
     Dates: start: 20200219
  2. CABOMETYX [Suspect]
     Active Substance: CABOZANTINIB S-MALATE
     Indication: RENAL CELL CARCINOMA
     Dosage: 40 MG, QD
     Route: 048
     Dates: start: 20200120, end: 20200206
  3. PREDNISONE. [Concomitant]
     Active Substance: PREDNISONE

REACTIONS (7)
  - Pneumonia [Recovered/Resolved]
  - Pain in extremity [Unknown]
  - Swelling [Unknown]
  - Pain [Unknown]
  - Chromaturia [Unknown]
  - Upper respiratory tract infection [Recovered/Resolved]
  - Arthralgia [Unknown]
